FAERS Safety Report 17395124 (Version 3)
Quarter: 2020Q2

REPORT INFORMATION
  Report Type: Report from Study
  Country: US (occurrence: US)
  Receive Date: 20200210
  Receipt Date: 20200527
  Transmission Date: 20200713
  Serious: Yes (Disabling, Other)
  Sender: FDA-Public Use
  Company Number: NVSC2020US034792

PATIENT
  Sex: Female

DRUGS (5)
  1. HYDROCODONE BITARTRATE. [Concomitant]
     Active Substance: HYDROCODONE BITARTRATE
     Indication: PRODUCT USED FOR UNKNOWN INDICATION
     Dosage: UNK
     Route: 065
  2. VITAMIN D [Concomitant]
     Active Substance: VITAMIN D NOS
     Indication: PRODUCT USED FOR UNKNOWN INDICATION
     Dosage: 50000 U
     Route: 065
  3. TIZANIDINE. [Concomitant]
     Active Substance: TIZANIDINE
     Indication: PRODUCT USED FOR UNKNOWN INDICATION
     Dosage: 4 MG, QD
     Route: 048
  4. GILENYA [Suspect]
     Active Substance: FINGOLIMOD HYDROCHLORIDE
     Indication: MULTIPLE SCLEROSIS
     Dosage: 0.5 MG, QD
     Route: 048
  5. GILENYA [Suspect]
     Active Substance: FINGOLIMOD HYDROCHLORIDE
     Dosage: 0.5 MG, QD
     Route: 048

REACTIONS (11)
  - Multiple sclerosis relapse [Recovering/Resolving]
  - Muscular weakness [Recovering/Resolving]
  - Bradykinesia [Recovering/Resolving]
  - Hypoaesthesia [Unknown]
  - Urinary incontinence [Unknown]
  - Pain [Recovering/Resolving]
  - Gait disturbance [Unknown]
  - Product dose omission [Recovered/Resolved]
  - Disturbance in attention [Unknown]
  - Dysstasia [Recovering/Resolving]
  - Somnolence [Recovering/Resolving]
